FAERS Safety Report 8509055-6 (Version None)
Quarter: 2012Q3

REPORT INFORMATION
  Report Type: 
  Country: None (occurrence: None)
  Receive Date: 20120703
  Receipt Date: 20120619
  Transmission Date: 20120928
  Serious: Yes (Other)
  Sender: FDA-Public Use
  Company Number: JP-2012-2306

PATIENT
  Age: 65 Year
  Sex: Male

DRUGS (2)
  1. NAVELBINE [Suspect]
     Indication: LUNG ADENOCARCINOMA
  2. CISPLATIN [Suspect]
     Indication: LUNG ADENOCARCINOMA

REACTIONS (1)
  - PULMONARY EMBOLISM [None]
